FAERS Safety Report 11571189 (Version 1)
Quarter: 2015Q3

REPORT INFORMATION
  Report Type: Spontaneous
  Country: US (occurrence: GB)
  Receive Date: 20150929
  Receipt Date: 20150929
  Transmission Date: 20151125
  Serious: Yes (Hospitalization)
  Sender: FDA-Public Use
  Company Number: GB-FRI-1000079945

PATIENT
  Sex: Female

DRUGS (6)
  1. THYROXIN [Concomitant]
     Active Substance: LEVOTHYROXINE
     Dosage: UNK
  2. LINACLOTIDE [Suspect]
     Active Substance: LINACLOTIDE
     Dosage: 0.5 DF
     Route: 048
  3. LINACLOTIDE [Suspect]
     Active Substance: LINACLOTIDE
     Dosage: 290 MCG
     Route: 048
     Dates: start: 20150820
  4. VITAMIN D [Concomitant]
     Active Substance: CHOLECALCIFEROL
     Dosage: THREE TIMES PER WEEK
  5. FLUOXETINE [Concomitant]
     Active Substance: FLUOXETINE\FLUOXETINE HYDROCHLORIDE
     Dosage: UNK
  6. ANTIHISTAMINES [Concomitant]
     Active Substance: ANTIHISTAMINES NOS
     Dosage: UNK

REACTIONS (15)
  - Movement disorder [Unknown]
  - Solar dermatitis [Unknown]
  - Nervous system disorder [Unknown]
  - Tremor [Unknown]
  - Abdominal pain upper [Unknown]
  - Dizziness [Unknown]
  - Pain in extremity [Unknown]
  - Aphasia [Unknown]
  - Hearing impaired [Unknown]
  - Fatigue [Unknown]
  - Eye disorder [Unknown]
  - Dehydration [Unknown]
  - Musculoskeletal stiffness [Unknown]
  - Headache [Unknown]
  - Decreased appetite [Unknown]
